FAERS Safety Report 13587493 (Version 1)
Quarter: 2017Q2

REPORT INFORMATION
  Report Type: Spontaneous
  Country: US (occurrence: US)
  Receive Date: 20170526
  Receipt Date: 20170526
  Transmission Date: 20170830
  Serious: Yes (Life-Threatening)
  Sender: FDA-Public Use
  Company Number: None

PATIENT
  Age: 26 Year
  Sex: Female
  Weight: 121.5 kg

DRUGS (3)
  1. METFORMIN 500MG TABLET ZYDUS [Suspect]
     Active Substance: METFORMIN HYDROCHLORIDE
     Indication: POLYCYSTIC OVARIES
     Dosage: ?          QUANTITY:1 TABLET(S);?
     Route: 048
  2. NORVASC [Concomitant]
     Active Substance: AMLODIPINE BESYLATE
  3. TYLENOL [Concomitant]
     Active Substance: ACETAMINOPHEN

REACTIONS (5)
  - Loss of employment [None]
  - Anxiety [None]
  - Depression [None]
  - Suicidal ideation [None]
  - Crying [None]

NARRATIVE: CASE EVENT DATE: 20170426
